FAERS Safety Report 23296163 (Version 1)
Quarter: 2023Q4

REPORT INFORMATION
  Report Type: Spontaneous
  Country: US (occurrence: US)
  Receive Date: 20231214
  Receipt Date: 20231214
  Transmission Date: 20240110
  Serious: No
  Sender: FDA-Public Use
  Company Number: US-SA-SAC20231208000936

PATIENT
  Sex: Male
  Weight: 97 kg

DRUGS (4)
  1. DUPIXENT [Suspect]
     Active Substance: DUPILUMAB
     Indication: Nasal polyps
     Dosage: 300MG , QOW
     Route: 058
     Dates: start: 20220526
  2. TYLENOL [Concomitant]
     Active Substance: ACETAMINOPHEN
  3. ALBUTEROL SULFATE [Concomitant]
     Active Substance: ALBUTEROL SULFATE
  4. ACYCLOVIR [Concomitant]
     Active Substance: ACYCLOVIR

REACTIONS (3)
  - Visual impairment [Not Recovered/Not Resolved]
  - Nasal polyps [Unknown]
  - Condition aggravated [Unknown]
